FAERS Safety Report 5229745-0 (Version None)
Quarter: 2007Q1

REPORT INFORMATION
  Report Type: 
  Country: None (occurrence: None)
  Receive Date: 20070206
  Receipt Date: 20070126
  Transmission Date: 20070707
  Serious: Yes (Other)
  Sender: FDA-Public Use
  Company Number: US-PURDUE-USA_2007_0026340

PATIENT
  Age: 42 Year
  Sex: Male

DRUGS (1)
  1. OXYCONTIN [Suspect]
     Indication: DRUG DEPENDENCE
     Dosage: UNK UNK, UNK
     Route: 065

REACTIONS (3)
  - DRUG DEPENDENCE [None]
  - MENTAL DISORDER [None]
  - MENTAL STATUS CHANGES [None]
